FAERS Safety Report 8078727-2 (Version None)
Quarter: 2012Q1

REPORT INFORMATION
  Report Type: 
  Country: None (occurrence: None)
  Receive Date: 20120124
  Receipt Date: 20120116
  Transmission Date: 20120608
  Serious: Yes (Life-Threatening, Hospitalization, Other)
  Sender: FDA-Public Use
  Company Number: AUR-APL-2012-00575

PATIENT
  Age: 36 Year
  Sex: Female

DRUGS (1)
  1. TRIMETHOPRIM + SULFAMETHOXAZOLE [Suspect]
     Indication: ACINETOBACTER INFECTION
     Dosage: (224 MG, 6 HR)

REACTIONS (2)
  - POLYURIA [None]
  - HYPERKALAEMIA [None]
